FAERS Safety Report 5737759-7 (Version None)
Quarter: 2008Q2

REPORT INFORMATION
  Report Type: 
  Country: None (occurrence: None)
  Receive Date: 20080514
  Receipt Date: 20080429
  Transmission Date: 20081010
  Serious: Yes (Hospitalization)
  Sender: FDA-Public Use
  Company Number: US-AVENTIS-200811382US

PATIENT
  Age: 13 Year
  Sex: Male

DRUGS (3)
  1. LANTUS [Suspect]
     Indication: TYPE 1 DIABETES MELLITUS
     Route: 051
     Dates: start: 20080225, end: 20080101
  2. LANTUS [Suspect]
     Dosage: DOSE: UNK
     Route: 058
  3. NOVOLOG [Concomitant]
     Dosage: DOSE: UNK

REACTIONS (1)
  - DIABETIC KETOACIDOSIS [None]
